FAERS Safety Report 10679184 (Version 2)
Quarter: 2014Q4

REPORT INFORMATION
  Report Type: Spontaneous
  Country: US (occurrence: US)
  Receive Date: 20141229
  Receipt Date: 20141229
  Transmission Date: 20150529
  Serious: Yes (Death, Hospitalization)
  Sender: FDA-Public Use
  Company Number: US-ACTELION-A-NJ2014-105509

PATIENT
  Age: 64 Year
  Sex: Female

DRUGS (4)
  1. XARELTO [Concomitant]
     Active Substance: RIVAROXABAN
  2. REMODULIN [Concomitant]
     Active Substance: TREPROSTINIL
     Dosage: UNK
     Dates: end: 20141218
  3. VENTAVIS [Suspect]
     Active Substance: ILOPROST
     Indication: PULMONARY ARTERIAL HYPERTENSION
     Dosage: 5 MCG, 6-9/DAY
     Route: 055
     Dates: start: 20110715
  4. LETAIRIS [Concomitant]
     Active Substance: AMBRISENTAN

REACTIONS (6)
  - Oedema [Unknown]
  - Oxygen saturation decreased [Unknown]
  - Death [Fatal]
  - Dyspnoea [Unknown]
  - Fluid overload [Unknown]
  - Fatigue [Unknown]

NARRATIVE: CASE EVENT DATE: 20141213
